FAERS Safety Report 6182840-4 (Version None)
Quarter: 2009Q2

REPORT INFORMATION
  Report Type: 
  Country: None (occurrence: None)
  Receive Date: 20090507
  Receipt Date: 20090429
  Transmission Date: 20091009
  Serious: Yes (Other)
  Sender: FDA-Public Use
  Company Number: US-BAYER-200916381NA

PATIENT
  Age: 55 Year
  Sex: Female
  Weight: 98 kg

DRUGS (11)
  1. CIPRO [Suspect]
     Indication: NEPHROLITHIASIS
     Dates: start: 20051201
  2. CIPRO [Suspect]
     Dates: start: 20080501
  3. CIPRO [Suspect]
     Dates: start: 20070901
  4. CIPRO [Suspect]
     Dates: start: 20080201
  5. CIPRO [Suspect]
     Dates: start: 20070501
  6. CIPRO [Suspect]
     Dates: start: 20060701
  7. CIPRO [Suspect]
     Dates: start: 20050314
  8. CIPRO [Suspect]
     Dates: start: 20070201
  9. DYAZIDE [Concomitant]
     Route: 048
  10. PREMARIN [Concomitant]
     Route: 048
  11. PRILOSEC [Concomitant]
     Route: 048

REACTIONS (7)
  - ANKLE FRACTURE [None]
  - ARTHRALGIA [None]
  - CONTUSION [None]
  - JOINT SWELLING [None]
  - LIGAMENT RUPTURE [None]
  - TENDON RUPTURE [None]
  - TENDONITIS [None]
